FAERS Safety Report 14410565 (Version 8)
Quarter: 2022Q4

REPORT INFORMATION
  Report Type: Spontaneous
  Country: SE (occurrence: SE)
  Receive Date: 20180119
  Receipt Date: 20221002
  Transmission Date: 20230112
  Serious: Yes (Congenital Anomaly)
  Sender: FDA-Public Use
  Company Number: PHHY2018SE004029

PATIENT

DRUGS (8)
  1. LAMOTRIGINE [Suspect]
     Active Substance: LAMOTRIGINE
     Indication: Foetal exposure during pregnancy
     Dosage: MATERNAL DOSE: 200 MG, BID (NEXT DOSE AFTER 20 DAYS)
     Route: 064
  2. LAMOTRIGINE [Suspect]
     Active Substance: LAMOTRIGINE
     Dosage: MATERNAL DOSE: 500 MG, QD (250 MGX 2)
     Route: 064
     Dates: end: 20171012
  3. LAMOTRIGINE [Suspect]
     Active Substance: LAMOTRIGINE
     Dosage: 600 MG, (MATENAL DOSE, LAST DOSE AFTER 30 DAYS)
     Route: 064
     Dates: start: 20171013
  4. LAMOTRIGINE [Suspect]
     Active Substance: LAMOTRIGINE
     Dosage: MATERNAL DOSE: UNK (300MG DAILY)
     Route: 064
     Dates: start: 20171013
  5. LAMOTRIGINE [Suspect]
     Active Substance: LAMOTRIGINE
     Dosage: MATERNAL DOSE: 300 MG, QD (300MG DAILY)
     Route: 064
  6. LEVETIRACETAM [Suspect]
     Active Substance: LEVETIRACETAM
     Indication: Foetal exposure during pregnancy
     Dosage: MOTHER DOSE: 3000 MG (1500 MG 2) IN 1 ST TRIMESTER
     Route: 064
  7. KEPPRA [Suspect]
     Active Substance: LEVETIRACETAM
     Indication: Foetal exposure during pregnancy
     Dosage: 1500 MG, QD (MOTHER DOSE) (DAILY DOSE)
     Route: 064
     Dates: start: 201708
  8. FOLACIN [Concomitant]
     Indication: Foetal exposure during pregnancy
     Dosage: UNK
     Route: 064

REACTIONS (4)
  - Foetal exposure during pregnancy [Unknown]
  - Dandy-Walker syndrome [Not Recovered/Not Resolved]
  - Foetal malformation [Unknown]
  - Umbilical hernia [Unknown]

NARRATIVE: CASE EVENT DATE: 20170801
